FAERS Safety Report 9149306 (Version 1)
Quarter: 2013Q1

REPORT INFORMATION
  Report Type: Spontaneous
  Country: CA (occurrence: None)
  Receive Date: 20130131
  Receipt Date: 20130131
  Transmission Date: 20140127
  Serious: Yes (Hospitalization)
  Sender: FDA-Public Use
  Company Number: FK201300278

PATIENT
  Age: 55 Year
  Sex: Female
  Weight: 86.7 kg

DRUGS (19)
  1. FLUOROURACIL [Suspect]
     Indication: COLORECTAL CANCER METASTATIC
     Dosage: CYCLICAL, INTRAVENOUS
     Route: 042
     Dates: start: 20121009, end: 20121121
  2. OXALIPLATIN [Suspect]
     Indication: COLORECTAL CANCER METASTATIC
     Dosage: CYCLICAL, INTRAVENOUS
     Route: 042
     Dates: start: 20121009, end: 20121121
  3. LEUCOVORIN [Suspect]
     Indication: COLORECTAL CANCER METASTATIC
     Dosage: CYCLICAL, INTRAVENOUS
     Route: 042
     Dates: start: 20121009, end: 20121121
  4. ROSUVASTATIN (ROSUVASTATIN) [Concomitant]
  5. CALCIUM (CALCIUM) [Concomitant]
  6. CYMBALTA (DULOXETINE HYDROCHLORIDE) [Concomitant]
  7. GABAPENTIN (GABAPENTIN) [Concomitant]
  8. QUINAPRIL (QUINAPRIL) [Concomitant]
  9. CELEXA (CITALOPRAM HYDROBROMIDE) [Concomitant]
  10. ASA (ACETYLSALICYLIC ACID) [Concomitant]
  11. INSULIN DETEMIR (INSULIN DETEMIR) [Concomitant]
  12. NOVORAPID (INSULIN ASPART) [Concomitant]
  13. PERCOCET (TYLOX /00446701/) [Concomitant]
  14. ONDANSETRON (ONDANSETRON) [Concomitant]
  15. DEXAMETHASONE SODIUM PHOSPHATE (DEXAMETHASONE SODIUM PHOSPHATE) [Concomitant]
  16. METOCLOPRAMIDE (METOCLOPRAMIDE) [Concomitant]
  17. HYDROMORPHONE (HYDROMORPHONE) [Concomitant]
  18. ZOPICLONE (ZOPICLONE) [Concomitant]
  19. DULOXETINE [Concomitant]

REACTIONS (3)
  - Muscular weakness [None]
  - Hypoaesthesia [None]
  - Paraesthesia [None]
